FAERS Safety Report 7975520-3 (Version None)
Quarter: 2011Q4

REPORT INFORMATION
  Report Type: 
  Country: None (occurrence: None)
  Receive Date: 20111213
  Receipt Date: 20110930
  Transmission Date: 20120403
  Serious: No
  Sender: FDA-Public Use
  Company Number: US-AMGEN-USASP2011050745

PATIENT
  Age: 61 Year
  Sex: Female

DRUGS (1)
  1. ENBREL [Suspect]
     Indication: RHEUMATOID ARTHRITIS
     Dosage: 25 MG, UNK
     Route: 058
     Dates: start: 20000401

REACTIONS (7)
  - RHEUMATOID ARTHRITIS [None]
  - FOOT DEFORMITY [None]
  - COUGH [None]
  - ARTHRALGIA [None]
  - RHEUMATOID FACTOR INCREASED [None]
  - NASAL CONGESTION [None]
  - NASOPHARYNGITIS [None]
